FAERS Safety Report 24269386 (Version 1)
Quarter: 2024Q3

REPORT INFORMATION
  Report Type: Spontaneous
  Country: DE (occurrence: DE)
  Receive Date: 20240830
  Receipt Date: 20240830
  Transmission Date: 20241016
  Serious: Yes (Life-Threatening, Disabling, Congenital Anomaly, Other)
  Sender: DR REDDYS
  Company Number: None

PATIENT

DRUGS (5)
  1. LEVETIRACETAM [Suspect]
     Active Substance: LEVETIRACETAM
     Indication: Epilepsy
     Dosage: 2000 [MG/D ]/ SINCE 5-6 YEARS, 2X1000MG DAILY 2 SEPARATED DOSES
     Route: 064
     Dates: start: 20230516, end: 20230914
  2. CITALOPRAM [Suspect]
     Active Substance: CITALOPRAM\CITALOPRAM HYDROBROMIDE
     Indication: Depression
     Dosage: 20 [MG/D ]/ SINCE 12 YEARS
     Route: 064
     Dates: start: 20230516, end: 20230914
  3. MIFEPRISTONE [Concomitant]
     Active Substance: MIFEPRISTONE
     Indication: Abortion induced
     Dosage: 600 [MG/D ]
     Route: 064
     Dates: start: 20230912, end: 20230912
  4. MISOPROSTOL [Concomitant]
     Active Substance: MISOPROSTOL
     Indication: Abortion induced
     Route: 064
     Dates: start: 20230914, end: 20230914
  5. HEPARIN [Concomitant]
     Active Substance: HEPARIN SODIUM
     Indication: Coagulopathy
     Dosage: NO DETAILS KNOWN
     Route: 064

REACTIONS (5)
  - Spina bifida [Not Recovered/Not Resolved]
  - Arnold-Chiari malformation [Not Recovered/Not Resolved]
  - Meningomyelocele [Not Recovered/Not Resolved]
  - Foot deformity [Not Recovered/Not Resolved]
  - Foetal exposure during pregnancy [Unknown]
